FAERS Safety Report 24075652 (Version 2)
Quarter: 2024Q3

REPORT INFORMATION
  Report Type: Spontaneous
  Country: KR (occurrence: KR)
  Receive Date: 20240710
  Receipt Date: 20240711
  Transmission Date: 20241017
  Serious: Yes (Other)
  Sender: PFIZER
  Company Number: KR-PFIZER INC-PV202400089246

PATIENT
  Age: 79 Year
  Sex: Male

DRUGS (6)
  1. CARBOPLATIN [Suspect]
     Active Substance: CARBOPLATIN
     Indication: Small cell lung cancer metastatic
     Dosage: 200 MG/M2, CYCLIC, TWO CYCLES
  2. CARBOPLATIN [Suspect]
     Active Substance: CARBOPLATIN
     Indication: Metastases to abdominal cavity
  3. ATEZOLIZUMAB [Suspect]
     Active Substance: ATEZOLIZUMAB
     Indication: Small cell lung cancer metastatic
     Dosage: 2 CYCLES OVER A 10-WEEK PERIOD
  4. ATEZOLIZUMAB [Suspect]
     Active Substance: ATEZOLIZUMAB
     Indication: Small cell lung cancer
  5. ETOPOSIDE [Suspect]
     Active Substance: ETOPOSIDE
     Indication: Small cell lung cancer metastatic
     Dosage: 2 CYCLES OVER A 10-WEEK PERIOD
  6. ETOPOSIDE [Suspect]
     Active Substance: ETOPOSIDE
     Indication: Metastases to abdominal cavity

REACTIONS (1)
  - Optic ischaemic neuropathy [Not Recovered/Not Resolved]
